FAERS Safety Report 14202646 (Version 5)
Quarter: 2018Q2

REPORT INFORMATION
  Report Type: Report from Study
  Country: None (occurrence: US)
  Receive Date: 20171118
  Receipt Date: 20180531
  Transmission Date: 20180711
  Serious: Yes (Hospitalization)
  Sender: FDA-Public Use
  Company Number: US-ABBVIE-17K-163-2162887-00

PATIENT
  Age: 46 Year
  Sex: Female
  Weight: 72.64 kg

DRUGS (5)
  1. HUMIRA [Suspect]
     Active Substance: ADALIMUMAB
     Route: 058
     Dates: start: 201707
  2. HUMIRA [Suspect]
     Active Substance: ADALIMUMAB
     Route: 058
  3. HUMIRA [Suspect]
     Active Substance: ADALIMUMAB
     Indication: CROHN^S DISEASE
     Route: 058
     Dates: start: 20170320, end: 201707
  4. HUMIRA [Suspect]
     Active Substance: ADALIMUMAB
     Route: 058
  5. IMURAN [Concomitant]
     Active Substance: AZATHIOPRINE
     Indication: CROHN^S DISEASE

REACTIONS (10)
  - Rectal fissure [Recovered/Resolved]
  - Stoma site haemorrhage [Not Recovered/Not Resolved]
  - Crohn^s disease [Unknown]
  - Paraesthesia [Recovered/Resolved]
  - Influenza [Not Recovered/Not Resolved]
  - Upper respiratory tract infection [Recovering/Resolving]
  - Stress [Unknown]
  - Injection site pain [Not Recovered/Not Resolved]
  - Defaecation urgency [Unknown]
  - Drug ineffective [Unknown]

NARRATIVE: CASE EVENT DATE: 2017
